FAERS Safety Report 4467747-2 (Version None)
Quarter: 2004Q4

REPORT INFORMATION
  Report Type: 
  Country: None (occurrence: None)
  Receive Date: 20041001
  Receipt Date: 20040915
  Transmission Date: 20050328
  Serious: Yes (Death, Hospitalization)
  Sender: FDA-Public Use
  Company Number: DSA_25014_2004

PATIENT
  Age: 72 Year
  Sex: Male

DRUGS (9)
  1. TAVOR [Suspect]
     Dosage: 1 DF Q DAY PO
     Route: 048
     Dates: start: 19940101, end: 20040818
  2. ACEBUTOLOL HYDROCHLORIDE [Suspect]
     Dosage: 1 DF Q DAY PO
     Route: 048
     Dates: start: 19890101, end: 20040823
  3. COVERSYL [Suspect]
     Dosage: 4 MG DAY PO
     Route: 048
     Dates: start: 19890101, end: 20040818
  4. DIPRIVAN [Suspect]
     Dates: start: 20040720, end: 20040720
  5. DOGMATIL [Suspect]
     Dosage: 50 MG Q DAY PO
     Route: 048
     Dates: start: 19940101, end: 20040818
  6. HERBAL PREPARATION [Suspect]
     Dosage: 275 MG QID PO
     Route: 048
     Dates: start: 20040811, end: 20040812
  7. KARDEGIC [Suspect]
     Dosage: 160 MG Q DAY PO
     Route: 048
     Dates: start: 19890101, end: 20040818
  8. RAPIFEN [Suspect]
     Dates: start: 20040720, end: 20040720
  9. SEVOFLURANE [Suspect]
     Dates: start: 20040720, end: 20040720

REACTIONS (10)
  - ANTINUCLEAR ANTIBODY POSITIVE [None]
  - BILE DUCT CANCER [None]
  - COAGULATION FACTOR V LEVEL DECREASED [None]
  - GALLBLADDER DISORDER [None]
  - HEPATIC ENCEPHALOPATHY [None]
  - HEPATIC STEATOSIS [None]
  - HEPATITIS FULMINANT [None]
  - PLATELET COUNT INCREASED [None]
  - SPLENOMEGALY [None]
  - WHITE BLOOD CELL COUNT DECREASED [None]
